FAERS Safety Report 20907468 (Version 3)
Quarter: 2022Q2

REPORT INFORMATION
  Report Type: Report from Study
  Country: CA (occurrence: CA)
  Receive Date: 20220602
  Receipt Date: 20220617
  Transmission Date: 20220720
  Serious: Yes (Hospitalization, Other)
  Sender: FDA-Public Use
  Company Number: CA-BIOGEN-2021BI00994058

PATIENT
  Sex: Female

DRUGS (9)
  1. SPINRAZA [Suspect]
     Active Substance: NUSINERSEN
     Indication: Spinal muscular atrophy
     Dosage: 12 MG/5ML DAYS 0, 14, 28, 58, THEN EVERY 4 MONTHS THEREAFTER
     Route: 065
     Dates: start: 20180806
  2. SPINRAZA [Suspect]
     Active Substance: NUSINERSEN
     Dosage: 2.4MG/ML?DAYS 0, 14, 28, 58, THEN EVERY 4 MONTHS
     Route: 065
     Dates: start: 20180806
  3. SPINRAZA [Suspect]
     Active Substance: NUSINERSEN
     Route: 065
     Dates: start: 201809
  4. SPINRAZA [Suspect]
     Active Substance: NUSINERSEN
     Route: 065
  5. LANSOPRAZOLE [Concomitant]
     Active Substance: LANSOPRAZOLE
     Indication: Product used for unknown indication
     Route: 065
  6. VITAMIN D3 [Concomitant]
     Active Substance: CHOLECALCIFEROL
     Indication: Product used for unknown indication
     Route: 065
  7. Enfamil fer-in-sol [Concomitant]
     Indication: Product used for unknown indication
     Route: 048
  8. FISH OIL [Concomitant]
     Active Substance: FISH OIL
     Indication: Product used for unknown indication
     Route: 065
  9. FLAX [Concomitant]
     Indication: Product used for unknown indication
     Route: 065

REACTIONS (18)
  - Scoliosis [Unknown]
  - Hypoventilation [Unknown]
  - Musculoskeletal procedural complication [Unknown]
  - Impaired self-care [Unknown]
  - Balance disorder [Unknown]
  - Posture abnormal [Unknown]
  - Bronchial wall thickening [Unknown]
  - Abdominal distension [Unknown]
  - Scoliosis [Unknown]
  - Bone density decreased [Unknown]
  - Joint contracture [Unknown]
  - Muscular weakness [Unknown]
  - Hypotonia [Unknown]
  - Neurological examination abnormal [Unknown]
  - Musculoskeletal stiffness [Unknown]
  - Motor dysfunction [Unknown]
  - Physical examination abnormal [Unknown]
  - Nasopharyngitis [Unknown]

NARRATIVE: CASE EVENT DATE: 20200101
